FAERS Safety Report 6933287-1 (Version None)
Quarter: 2010Q3

REPORT INFORMATION
  Report Type: 
  Country: None (occurrence: None)
  Receive Date: 20100820
  Receipt Date: 20100809
  Transmission Date: 20110219
  Serious: Yes (Hospitalization)
  Sender: FDA-Public Use
  Company Number: US-CELGENEUS-163-21880-10080770

PATIENT
  Sex: Male
  Weight: 75.5 kg

DRUGS (12)
  1. REVLIMID [Suspect]
     Route: 048
     Dates: start: 20081119, end: 20090105
  2. SGN-33 [Suspect]
     Route: 050
     Dates: start: 20081119, end: 20081230
  3. LISINOPRIL [Concomitant]
     Indication: PRODUCT USED FOR UNKNOWN INDICATION
     Route: 065
     Dates: start: 20070101
  4. GLIPIZIDE [Concomitant]
     Indication: PRODUCT USED FOR UNKNOWN INDICATION
     Route: 065
     Dates: start: 20070101
  5. NITROGLYCERIN [Concomitant]
     Indication: CHEST PAIN
     Route: 060
  6. ACETYLSALICYLIC ACID [Concomitant]
     Indication: CHEST PAIN
     Route: 065
  7. PRILOSEC [Concomitant]
     Indication: PRODUCT USED FOR UNKNOWN INDICATION
     Route: 065
  8. INDOCIN [Concomitant]
     Indication: PRODUCT USED FOR UNKNOWN INDICATION
     Route: 065
  9. CIPRO [Concomitant]
     Indication: PROPHYLAXIS
     Route: 065
  10. DIFLUCAN [Concomitant]
     Indication: PROPHYLAXIS
     Route: 065
  11. AMIODARONE [Concomitant]
     Indication: ATRIAL FIBRILLATION
     Route: 065
  12. FLUIDS [Concomitant]
     Indication: PRODUCT USED FOR UNKNOWN INDICATION
     Route: 051

REACTIONS (1)
  - PERICARDIAL EFFUSION [None]
